FAERS Safety Report 8887204 (Version 1)
Quarter: 2012Q4

REPORT INFORMATION
  Report Type: 
  Country: US (occurrence: US)
  Receive Date: 20121105
  Receipt Date: 20121105
  Transmission Date: 20130627
  Serious: No
  Sender: FDA-Public Use
  Company Number: US-009507513-1210USA009536

PATIENT
  Sex: Male

DRUGS (1)
  1. TINACTIN LIQUID SPRAY [Suspect]
     Indication: PRODUCT USED FOR UNKNOWN INDICATION
     Dosage: UNK, Unknown
     Route: 061
     Dates: start: 20120814

REACTIONS (1)
  - Burning sensation [Recovered/Resolved]
